FAERS Safety Report 24442481 (Version 1)
Quarter: 2024Q4

REPORT INFORMATION
  Report Type: Spontaneous
  Country: ES (occurrence: ES)
  Receive Date: 20241016
  Receipt Date: 20241016
  Transmission Date: 20250115
  Serious: Yes (Other)
  Sender: AUROBINDO
  Company Number: ES-UCBSA-2024049785

PATIENT
  Age: 179 Month
  Sex: Male

DRUGS (13)
  1. LACOSAMIDE [Suspect]
     Active Substance: LACOSAMIDE
     Indication: Partial seizures
     Dosage: UNKNOWN
     Route: 065
  2. LACOSAMIDE [Suspect]
     Active Substance: LACOSAMIDE
     Indication: Hypoxic-ischaemic encephalopathy
  3. LEVETIRACETAM [Suspect]
     Active Substance: LEVETIRACETAM
     Indication: Partial seizures
     Dosage: UNKNOWN
     Route: 065
  4. LEVETIRACETAM [Suspect]
     Active Substance: LEVETIRACETAM
     Indication: Epilepsy
  5. LEVETIRACETAM [Suspect]
     Active Substance: LEVETIRACETAM
     Indication: Hypoxic-ischaemic encephalopathy
  6. TOPIRAMATE [Suspect]
     Active Substance: TOPIRAMATE
     Indication: Partial seizures
     Dosage: UNKNOWN
     Route: 065
  7. TOPIRAMATE [Suspect]
     Active Substance: TOPIRAMATE
     Indication: Hypoxic-ischaemic encephalopathy
  8. VALPROIC ACID [Suspect]
     Active Substance: VALPROIC ACID
     Indication: Hypoxic-ischaemic encephalopathy
     Dosage: UNKNOWN
     Route: 065
  9. VALPROIC ACID [Suspect]
     Active Substance: VALPROIC ACID
     Indication: Partial seizures
  10. CLOBAZAM [Suspect]
     Active Substance: CLOBAZAM
     Indication: Hypoxic-ischaemic encephalopathy
     Dosage: UNKNOWN
     Route: 065
  11. CLOBAZAM [Suspect]
     Active Substance: CLOBAZAM
     Indication: Partial seizures
  12. OXCARBAZEPINE [Suspect]
     Active Substance: OXCARBAZEPINE
     Indication: Hypoxic-ischaemic encephalopathy
     Dosage: UNKNOWN
     Route: 065
  13. OXCARBAZEPINE [Suspect]
     Active Substance: OXCARBAZEPINE
     Indication: Partial seizures

REACTIONS (1)
  - Seizure [Unknown]
